FAERS Safety Report 16896829 (Version 4)
Quarter: 2020Q1

REPORT INFORMATION
  Report Type: Spontaneous
  Country: NZ (occurrence: NZ)
  Receive Date: 20191008
  Receipt Date: 20200317
  Transmission Date: 20200409
  Serious: Yes (Other)
  Sender: FDA-Public Use
  Company Number: NZ-BAXTER-2019BAX015192

PATIENT
  Age: 23 Year
  Sex: Female

DRUGS (63)
  1. GLUCOSE INJECTION, 5%, SOLUTION FOR INFUSION [Suspect]
     Active Substance: DEXTROSE
     Dosage: HPN WITH ZINC RE-INTRODUCED
     Route: 042
  2. GLUCOSE INJECTION, 5%, SOLUTION FOR INFUSION [Suspect]
     Active Substance: DEXTROSE
     Dosage: HPN WITHOUT ZINC (TOLERATED PN)
     Route: 042
  3. CLINOLEIC, EMULSION FOR INFUSION [Suspect]
     Active Substance: OLIVE OIL\SOYBEAN OIL
     Dosage: HPN WITH ZINC
     Route: 042
     Dates: start: 20190326
  4. CERNEVIT [Suspect]
     Active Substance: VITAMINS
     Dosage: HPN WITH ZINC
     Route: 042
     Dates: start: 20190326
  5. CERNEVIT [Suspect]
     Active Substance: VITAMINS
     Dosage: HPN WITH LIPID
     Route: 042
  6. ZINC. [Suspect]
     Active Substance: ZINC
     Indication: GASTROINTESTINAL MOTILITY DISORDER
     Dosage: AS PART OF HPN (INDIVIDUALIZED FORMULA)
     Route: 042
     Dates: start: 20190326
  7. SODIUM [Suspect]
     Active Substance: SODIUM
     Dosage: HPN WITH LIPID
     Route: 042
  8. MAGNESIUM [Suspect]
     Active Substance: MAGNESIUM
     Dosage: HPN WITH ZINC(DOSE RE-INTRODUCED)
     Route: 042
  9. ATDE [MINERALS] [Suspect]
     Active Substance: MINERALS
     Dosage: HPN WITH LIPID
     Route: 042
  10. CLINOLEIC, EMULSION FOR INFUSION [Suspect]
     Active Substance: OLIVE OIL\SOYBEAN OIL
     Indication: GASTROINTESTINAL MOTILITY DISORDER
     Dosage: HPN WITH OUT ZINC
     Route: 042
     Dates: start: 201903
  11. CERNEVIT [Suspect]
     Active Substance: VITAMINS
     Dosage: HPN (LIPID FREE FORMULATION), APPROXIMATELY FOR 6 WEEKS
     Route: 042
  12. SODIUM [Suspect]
     Active Substance: SODIUM
     Dosage: HPN WITHOUT ZINC (TOLERATED PN)
     Route: 042
  13. POTASSIUM [Suspect]
     Active Substance: POTASSIUM
     Dosage: HPN WITH ZINC
     Route: 042
     Dates: start: 20190326
  14. ATDE [MINERALS] [Suspect]
     Active Substance: MINERALS
     Dosage: HPN WITH ZINC (DOSE RE-INTRODUCED)
     Route: 042
  15. ATDE [MINERALS] [Suspect]
     Active Substance: MINERALS
     Dosage: HPN (LIPID FREE FORMULATION), APPROXIMATELY FOR 6 WEEKS
     Route: 042
  16. PARACETAMOL [Concomitant]
     Active Substance: ACETAMINOPHEN
     Indication: PRODUCT USED FOR UNKNOWN INDICATION
     Dosage: PARACETAMOL LIQUID, NASOGASTRIC ROUTE
     Route: 065
  17. BUSCOPAN [Concomitant]
     Active Substance: BUTYLSCOPOLAMINE BROMIDE
     Indication: PRODUCT USED FOR UNKNOWN INDICATION
     Route: 042
     Dates: start: 201810
  18. GLUCOSE INJECTION, 5%, SOLUTION FOR INFUSION [Suspect]
     Active Substance: DEXTROSE
     Indication: GASTROINTESTINAL MOTILITY DISORDER
     Dosage: HPN WITHOUT ZINC
     Route: 042
     Dates: start: 201903
  19. SYNTHAMIN 17 WITH ELECTROLYTES, 10%, SOLUTION FOR INFUSION [Suspect]
     Active Substance: AMINO ACIDS\ELECTROLYTES NOS
     Dosage: HPN WITH LIPID
     Route: 042
  20. CERNEVIT [Suspect]
     Active Substance: VITAMINS
     Dosage: HPN WITH OUT ZINC (TOLERATED PN)
     Route: 042
  21. POTASSIUM [Suspect]
     Active Substance: POTASSIUM
     Dosage: HPN WITH ZINC (DOSE RE-INTRODUCED)
     Route: 042
  22. POTASSIUM [Suspect]
     Active Substance: POTASSIUM
     Dosage: HPN WITHOUT ZINC (TOLERATED PN)
     Route: 042
  23. MAGNESIUM [Suspect]
     Active Substance: MAGNESIUM
     Dosage: HPN WITH ZINC
     Route: 042
     Dates: start: 20190326
  24. CALCIUM [Suspect]
     Active Substance: CALCIUM
     Dosage: HPN WITH LIPID
     Route: 042
  25. ATDE [MINERALS] [Suspect]
     Active Substance: MINERALS
     Dosage: HPN WITHOUT ZINC (TOLERATED PN)
     Route: 042
  26. METOPROLOL TARTRATE. [Concomitant]
     Active Substance: METOPROLOL TARTRATE
     Indication: POSTURAL ORTHOSTATIC TACHYCARDIA SYNDROME
     Dosage: NASOGASTRIC ROUTE?METOPROLOL TARTARATE LIQUID
     Route: 065
     Dates: start: 201807
  27. PROMETHAZINE [Concomitant]
     Active Substance: PROMETHAZINE HYDROCHLORIDE
     Indication: PRODUCT USED FOR UNKNOWN INDICATION
     Route: 042
     Dates: start: 201810
  28. MONTELUKAST [Concomitant]
     Active Substance: MONTELUKAST SODIUM
     Indication: DRUG THERAPY
     Route: 065
     Dates: start: 201807
  29. GLUCOSE INJECTION, 5%, SOLUTION FOR INFUSION [Suspect]
     Active Substance: DEXTROSE
     Dosage: HPN (LIPID FREE FORMULATION), APPROXIMATELY FOR 6 WEEKS
     Route: 042
  30. SYNTHAMIN 17 WITH ELECTROLYTES, 10%, SOLUTION FOR INFUSION [Suspect]
     Active Substance: AMINO ACIDS\ELECTROLYTES NOS
     Dosage: HPN WITH ZINC RE-INTRODUCED
     Route: 042
  31. CERNEVIT [Suspect]
     Active Substance: VITAMINS
     Dosage: HPN WITH ZINC (DOSE RE-INTRODUCED)
     Route: 042
  32. MAGNESIUM [Suspect]
     Active Substance: MAGNESIUM
     Indication: GASTROINTESTINAL MOTILITY DISORDER
     Dosage: HPN WITHOUT ZINC
     Route: 042
     Dates: start: 201903
  33. MAGNESIUM [Suspect]
     Active Substance: MAGNESIUM
     Dosage: HPN (LIPID FREE FORMULATION), APPROXIMATELY FOR 6 WEEKS
     Route: 042
  34. ATDE [MINERALS] [Suspect]
     Active Substance: MINERALS
     Dosage: HPN WITH ZINC
     Route: 042
     Dates: start: 20190326
  35. CYCLIZINE [Concomitant]
     Active Substance: CYCLIZINE
     Indication: PRODUCT USED FOR UNKNOWN INDICATION
     Route: 042
     Dates: start: 201810
  36. PLASMA-LYTE 148 [Suspect]
     Active Substance: MAGNESIUM CHLORIDE\POTASSIUM CHLORIDE\SODIUM ACETATE\SODIUM CHLORIDE\SODIUM GLUCONATE
     Indication: PRODUCT USED FOR UNKNOWN INDICATION
     Dosage: 1500 ML PER WEEK ON AVERAGE
     Route: 065
  37. SYNTHAMIN 17 WITH ELECTROLYTES, 10%, SOLUTION FOR INFUSION [Suspect]
     Active Substance: AMINO ACIDS\ELECTROLYTES NOS
     Dosage: HPN WITH ZINC
     Route: 042
     Dates: start: 20190326
  38. ZINC. [Suspect]
     Active Substance: ZINC
     Dosage: PRESENT IN HPN FORMULA; DOSE RE-INTRODUCED WRT HEADACHES, HIVES ON TONGUE, TINGLING TONGUE
     Route: 042
  39. SODIUM [Suspect]
     Active Substance: SODIUM
     Dosage: HPN WITH ZINC
     Route: 042
     Dates: start: 20190326
  40. GLUCOSE INJECTION, 5%, SOLUTION FOR INFUSION [Suspect]
     Active Substance: DEXTROSE
     Dosage: HPN WITH LIPID
     Route: 042
  41. CERNEVIT [Suspect]
     Active Substance: VITAMINS
     Indication: GASTROINTESTINAL MOTILITY DISORDER
     Dosage: HPN WITH OUT ZINC
     Route: 042
     Dates: start: 201903
  42. SODIUM [Suspect]
     Active Substance: SODIUM
     Indication: GASTROINTESTINAL MOTILITY DISORDER
     Dosage: HPN WITHOUT ZINC
     Route: 042
     Dates: start: 201903
  43. SODIUM [Suspect]
     Active Substance: SODIUM
     Dosage: HPN WITH ZINC (DOSE RE-INTRODUCED)
     Route: 042
  44. POTASSIUM [Suspect]
     Active Substance: POTASSIUM
     Dosage: HPN (LIPID FREE FORMULATION), APPROXIMATELY FOR 6 WEEKS
     Route: 042
  45. POTASSIUM [Suspect]
     Active Substance: POTASSIUM
     Dosage: HPN WITH LIPID
     Route: 042
  46. MAGNESIUM [Suspect]
     Active Substance: MAGNESIUM
     Dosage: HPN WITH LIPID
     Route: 042
  47. CALCIUM [Suspect]
     Active Substance: CALCIUM
     Dosage: HPN WITHOUT ZINC(TOLERATED PN)
     Route: 042
  48. CALCIUM [Suspect]
     Active Substance: CALCIUM
     Dosage: HPN (LIPID FREE FORMULATION), APPROXIMATELY FOR 6 WEEKS
     Route: 042
  49. GLUCOSE INJECTION, 5%, SOLUTION FOR INFUSION [Suspect]
     Active Substance: DEXTROSE
     Dosage: HPN WITH ZINC
     Route: 042
     Dates: start: 20190326
  50. SYNTHAMIN 17 WITH ELECTROLYTES, 10%, SOLUTION FOR INFUSION [Suspect]
     Active Substance: AMINO ACIDS\ELECTROLYTES NOS
     Indication: GASTROINTESTINAL MOTILITY DISORDER
     Dosage: HPN WITH OUT ZINC
     Route: 042
     Dates: start: 201903
  51. CLINOLEIC, EMULSION FOR INFUSION [Suspect]
     Active Substance: OLIVE OIL\SOYBEAN OIL
     Dosage: HPN WITH OUT ZINC (TOLERATED PN)
     Route: 042
  52. SODIUM [Suspect]
     Active Substance: SODIUM
     Dosage: HPN (LIPID FREE FORMULATION), APPROXIMATELY FOR 6 WEEKS
     Route: 042
  53. CALCIUM [Suspect]
     Active Substance: CALCIUM
     Dosage: HPN WITH ZINC(DOSE RE-INTRODUCED)
     Route: 042
  54. ATDE [MINERALS] [Suspect]
     Active Substance: MINERALS
     Indication: GASTROINTESTINAL MOTILITY DISORDER
     Dosage: HPN WITHOUT ZINC
     Route: 042
     Dates: start: 201903
  55. SYNTHAMIN 17 WITH ELECTROLYTES, 10%, SOLUTION FOR INFUSION [Suspect]
     Active Substance: AMINO ACIDS\ELECTROLYTES NOS
     Dosage: HPN WITH OUT ZINC (TOLERATED PN)
     Route: 042
  56. SYNTHAMIN 17 WITH ELECTROLYTES, 10%, SOLUTION FOR INFUSION [Suspect]
     Active Substance: AMINO ACIDS\ELECTROLYTES NOS
     Dosage: HPN (LIPID FREE FORMULATION), APPROXIMATELY FOR 6 WEEKS
     Route: 042
  57. CLINOLEIC, EMULSION FOR INFUSION [Suspect]
     Active Substance: OLIVE OIL\SOYBEAN OIL
     Dosage: HPN WITH ZINC DOSE RE-INTRODUCED
     Route: 042
  58. CLINOLEIC, EMULSION FOR INFUSION [Suspect]
     Active Substance: OLIVE OIL\SOYBEAN OIL
     Dosage: HPN REINTRODUCED WITH CLINOLEIC TO USUAL PRESCRIPTION
     Route: 042
  59. OLIMEL E [Suspect]
     Active Substance: AMINO ACIDS\DEXTROSE\ELECTROLYTES NOS\SOYBEAN OIL
     Indication: GASTROINTESTINAL MOTILITY DISORDER
     Route: 065
  60. POTASSIUM [Suspect]
     Active Substance: POTASSIUM
     Indication: GASTROINTESTINAL MOTILITY DISORDER
     Dosage: HPN WITHOUT ZINC
     Route: 042
     Dates: start: 201903
  61. MAGNESIUM [Suspect]
     Active Substance: MAGNESIUM
     Dosage: HPN WITHOUT ZINC(TOLERATED PN)
     Route: 042
  62. CALCIUM [Suspect]
     Active Substance: CALCIUM
     Indication: GASTROINTESTINAL MOTILITY DISORDER
     Dosage: HPN WITHOUT ZINC
     Route: 042
     Dates: start: 201903
  63. CALCIUM [Suspect]
     Active Substance: CALCIUM
     Dosage: HPN WITH ZINC
     Route: 042
     Dates: start: 20190326

REACTIONS (4)
  - Urticaria [Recovered/Resolved]
  - Headache [Recovered/Resolved]
  - Oral mucosal blistering [Recovered/Resolved]
  - Paraesthesia oral [Recovered/Resolved]

NARRATIVE: CASE EVENT DATE: 20190725
